FAERS Safety Report 11779597 (Version 1)
Quarter: 2015Q4

REPORT INFORMATION
  Report Type: Spontaneous
  Country: GB (occurrence: GB)
  Receive Date: 20151125
  Receipt Date: 20151125
  Transmission Date: 20160304
  Serious: Yes (Other)
  Sender: FDA-Public Use
  Company Number: GB-BAXTER-2015BAX063188

PATIENT
  Age: 27 Year
  Sex: Male
  Weight: 76.2 kg

DRUGS (2)
  1. GADOVIST [Suspect]
     Active Substance: GADOBUTROL
     Indication: NUCLEAR MAGNETIC RESONANCE IMAGING BRAIN
     Route: 051
  2. SODIUM CHLORIDE 0.9% INTRAVENOUS INFUSION BP [Suspect]
     Active Substance: SODIUM CHLORIDE
     Indication: NUCLEAR MAGNETIC RESONANCE IMAGING BRAIN
     Route: 051

REACTIONS (3)
  - Diarrhoea [Recovered/Resolved]
  - Nausea [Recovered/Resolved]
  - Skin burning sensation [Recovered/Resolved]

NARRATIVE: CASE EVENT DATE: 20151105
